FAERS Safety Report 8173153-X (Version None)
Quarter: 2012Q1

REPORT INFORMATION
  Report Type: 
  Country: None (occurrence: None)
  Receive Date: 20120229
  Receipt Date: 20110321
  Transmission Date: 20120608
  Serious: No
  Sender: FDA-Public Use
  Company Number: US-GLAXOSMITHKLINE-A0920180A

PATIENT
  Age: 63 Year
  Sex: Female

DRUGS (3)
  1. IMITREX [Suspect]
     Indication: MIGRAINE
     Dosage: 12MG AS REQUIRED
     Route: 058
     Dates: start: 19920101
  2. NO CONCURRENT MEDICATION [Concomitant]
  3. SUMATRIPTAN SUCCINATE [Suspect]
     Indication: MIGRAINE

REACTIONS (3)
  - INJECTION SITE PAIN [None]
  - DRUG INEFFECTIVE [None]
  - PRODUCT QUALITY ISSUE [None]
